FAERS Safety Report 4639092-3 (Version None)
Quarter: 2005Q2

REPORT INFORMATION
  Report Type: 
  Country: None (occurrence: None)
  Receive Date: 20050419
  Receipt Date: 20050412
  Transmission Date: 20051028
  Serious: Yes (Other)
  Sender: FDA-Public Use
  Company Number: PHBS2005BR05225

PATIENT
  Age: 75 Year
  Sex: Female

DRUGS (1)
  1. CODATEN [Suspect]
     Indication: CONTUSION
     Dosage: 100 MG, BID
     Route: 048
     Dates: start: 20050328, end: 20050330

REACTIONS (3)
  - FEELING ABNORMAL [None]
  - LABYRINTHITIS [None]
  - MALAISE [None]
